FAERS Safety Report 26028352 (Version 1)
Quarter: 2025Q4

REPORT INFORMATION
  Report Type: Spontaneous
  Country: CN (occurrence: CN)
  Receive Date: 20251111
  Receipt Date: 20251111
  Transmission Date: 20260118
  Serious: Yes (Hospitalization, Other)
  Sender: AMGEN
  Company Number: CN-AMGEN-CHNSP2025220818

PATIENT
  Age: 53 Year
  Sex: Male
  Weight: 78 kg

DRUGS (4)
  1. CARFILZOMIB [Suspect]
     Active Substance: CARFILZOMIB
     Indication: Plasma cell myeloma
     Dosage: 45 MILLIGRAM, QD
     Route: 040
     Dates: start: 20251021, end: 20251022
  2. CARFILZOMIB [Suspect]
     Active Substance: CARFILZOMIB
     Indication: Insomnia
  3. DEXTROSE [Concomitant]
     Active Substance: DEXTROSE MONOHYDRATE
     Indication: Plasma cell myeloma
     Dosage: 100 MILLILITER, QD
     Route: 040
     Dates: start: 20251021, end: 20251022
  4. DEXTROSE [Concomitant]
     Active Substance: DEXTROSE MONOHYDRATE
     Indication: Insomnia

REACTIONS (1)
  - Myelosuppression [Recovering/Resolving]

NARRATIVE: CASE EVENT DATE: 20251023
